FAERS Safety Report 9499386 (Version 1)
Quarter: 2013Q3

REPORT INFORMATION
  Report Type: Spontaneous
  Country: US (occurrence: US)
  Receive Date: 20130905
  Receipt Date: 20130905
  Transmission Date: 20140515
  Serious: No
  Sender: FDA-Public Use
  Company Number: US-009507513-1309USA001749

PATIENT
  Sex: Male

DRUGS (7)
  1. PEGINTRON [Suspect]
     Indication: HEPATITIS C
     Dosage: DOSE: 150 MCG/ 0.5 ML, PEGINTRON REDIPEN 150 MCG (4 SYR/PK), MIX AS DIRECTED, DIAL TO 0.5 ML
     Route: 058
  2. RIBAPAK [Suspect]
     Dosage: UNK
  3. MILK THISTLE [Concomitant]
  4. GINKGO [Concomitant]
  5. GINSENG (UNSPECIFIED) [Concomitant]
  6. VITAMINS (UNSPECIFIED) [Concomitant]
     Dosage: MULTI-VITAMIN TAB
  7. BILBERRY [Concomitant]

REACTIONS (3)
  - Circumstance or information capable of leading to medication error [Unknown]
  - Product quality issue [Unknown]
  - Device issue [Unknown]
